FAERS Safety Report 9470603 (Version 1)
Quarter: 2013Q3

REPORT INFORMATION
  Report Type: Spontaneous
  Country: US (occurrence: US)
  Receive Date: 20130822
  Receipt Date: 20130822
  Transmission Date: 20140515
  Serious: Yes (Disabling, Other)
  Sender: FDA-Public Use
  Company Number: US-ABBOTT-13P-163-1134454-00

PATIENT
  Sex: Female
  Weight: 59.02 kg

DRUGS (13)
  1. VICODIN [Suspect]
     Indication: PAIN
     Dosage: 5/500 MG OR 5/325 MG
  2. LYRICA [Suspect]
     Indication: BACK PAIN
  3. LYRICA [Suspect]
     Indication: MASS
  4. LYRICA [Suspect]
     Indication: JOINT SWELLING
  5. LYRICA [Suspect]
     Indication: SKIN DISCOLOURATION
  6. FENTANYL [Suspect]
     Indication: PAIN
     Dosage: PATCH
     Route: 062
  7. ATENOLOL [Suspect]
     Indication: PAIN
     Dosage: PATCH
     Route: 062
  8. UNSPECIFIED NARCOTICS [Suspect]
     Indication: PRODUCT USED FOR UNKNOWN INDICATION
  9. UNSPECIFIED SHOT [Suspect]
     Indication: PRODUCT USED FOR UNKNOWN INDICATION
  10. ENBREL [Concomitant]
     Indication: RHEUMATOID ARTHRITIS
  11. PROZAC [Concomitant]
     Indication: DEPRESSION
  12. UNSPECIFIED MEDICATION [Concomitant]
     Indication: HYPERSENSITIVITY
  13. UNSPECIFIED MEDICATION [Concomitant]
     Indication: ANTICOAGULANT THERAPY

REACTIONS (14)
  - Suicidal ideation [Recovered/Resolved]
  - Disability [Unknown]
  - Feeling abnormal [Recovered/Resolved]
  - Pain [Recovered/Resolved]
  - Agitation [Recovered/Resolved]
  - Anger [Recovered/Resolved]
  - Anxiety [Recovered/Resolved]
  - Self-injurious ideation [Recovered/Resolved]
  - Muscle rupture [Unknown]
  - Muscle strain [Unknown]
  - Back disorder [Unknown]
  - Hypersensitivity [Unknown]
  - Butterfly rash [Unknown]
  - Drug ineffective [Unknown]
